FAERS Safety Report 20221697 (Version 1)
Quarter: 2021Q4

REPORT INFORMATION
  Report Type: Report from Study
  Country: US (occurrence: US)
  Receive Date: 20211223
  Receipt Date: 20211223
  Transmission Date: 20220304
  Serious: Yes (Other)
  Sender: FDA-Public Use
  Company Number: US-JAZZ-2021-US-022666

PATIENT
  Sex: Female

DRUGS (9)
  1. XYREM [Suspect]
     Active Substance: SODIUM OXYBATE
     Indication: Narcolepsy
     Dosage: 2.25 GRAM, BID
     Route: 048
     Dates: start: 201905, end: 201905
  2. XYREM [Suspect]
     Active Substance: SODIUM OXYBATE
     Dosage: DOSE ADJUSTMENT
     Route: 048
     Dates: start: 201906, end: 201906
  3. XYREM [Suspect]
     Active Substance: SODIUM OXYBATE
     Dosage: 4.5 GRAM, BID
     Route: 048
     Dates: start: 201906, end: 201906
  4. OZEMPIC [Concomitant]
     Active Substance: SEMAGLUTIDE
     Dosage: 0000
     Dates: start: 20211001
  5. HYDROCHLOROTHIAZIDE [Concomitant]
     Active Substance: HYDROCHLOROTHIAZIDE
     Dosage: 0000
     Dates: start: 20210101
  6. TOPROL XL [Concomitant]
     Active Substance: METOPROLOL SUCCINATE
     Dosage: 0000
     Dates: start: 20210101
  7. MYRBETRIQ [Concomitant]
     Active Substance: MIRABEGRON
     Dosage: 0000
     Dates: start: 20200101
  8. UBRELVY [Concomitant]
     Active Substance: UBROGEPANT
     Dosage: 0000
     Dates: start: 20200101
  9. VYEPTI [Concomitant]
     Active Substance: EPTINEZUMAB-JJMR
     Dosage: 0000
     Dates: start: 20200101

REACTIONS (2)
  - Diabetes mellitus [Not Recovered/Not Resolved]
  - Blood pressure increased [Recovered/Resolved]
